FAERS Safety Report 5725837-8 (Version None)
Quarter: 2008Q2

REPORT INFORMATION
  Report Type: 
  Country: None (occurrence: None)
  Receive Date: 20080429
  Receipt Date: 20080410
  Transmission Date: 20081010
  Serious: No
  Sender: FDA-Public Use
  Company Number: 002#2#2008-00240

PATIENT
  Age: 82 Year
  Sex: Female

DRUGS (6)
  1. NEUPRO [Suspect]
     Indication: PARKINSON'S DISEASE
     Dosage: 2MG/24H,1 IN 1 D,TRANSDERMAL;  4MG/24H,1 IN 1 D,TRANSDERMAL
     Route: 062
     Dates: start: 20070901, end: 20071001
  2. AMANTADINE HCL [Concomitant]
  3. TOPROL-XL [Concomitant]
  4. ASPIRIN [Concomitant]
  5. MULTI-VITAMIN [Concomitant]
  6. PRILOSEC [Concomitant]

REACTIONS (6)
  - APPLICATION SITE ERYTHEMA [None]
  - BALANCE DISORDER [None]
  - DRUG EFFECT DECREASED [None]
  - INSOMNIA [None]
  - MUSCLE SPASMS [None]
  - TREMOR [None]
